FAERS Safety Report 6908575-5 (Version None)
Quarter: 2010Q3

REPORT INFORMATION
  Report Type: 
  Country: None (occurrence: None)
  Receive Date: 20100716
  Receipt Date: 20100513
  Transmission Date: 20110219
  Serious: Yes (Other)
  Sender: FDA-Public Use
  Company Number: 2010044796

PATIENT
  Sex: Male

DRUGS (2)
  1. CELEBREX [Suspect]
     Indication: ARTHRALGIA
     Dosage: 200 MG, 1X/DAY, ORAL
     Route: 048
     Dates: end: 20100401
  2. CELEBREX [Suspect]
     Indication: BACK PAIN
     Dosage: 200 MG, 1X/DAY, ORAL
     Route: 048
     Dates: end: 20100401

REACTIONS (4)
  - ANXIETY [None]
  - DYSPNOEA [None]
  - PALPITATIONS [None]
  - TACHYCARDIA [None]
